FAERS Safety Report 11858144 (Version 1)
Quarter: 2015Q4

REPORT INFORMATION
  Report Type: Spontaneous
  Country: US (occurrence: US)
  Receive Date: 20151222
  Receipt Date: 20151222
  Transmission Date: 20160305
  Serious: No
  Sender: FDA-Public Use
  Company Number: US-TEVA-596589USA

PATIENT
  Age: 60 Year
  Sex: Male

DRUGS (2)
  1. TRAZODONE [Suspect]
     Active Substance: TRAZODONE HYDROCHLORIDE
     Indication: DEPRESSION
  2. TRAZODONE [Suspect]
     Active Substance: TRAZODONE HYDROCHLORIDE
     Indication: ANXIETY

REACTIONS (3)
  - Drug ineffective [Unknown]
  - Psoriasis [Unknown]
  - Insomnia [Unknown]

NARRATIVE: CASE EVENT DATE: 201508
